FAERS Safety Report 6223760-6 (Version None)
Quarter: 2009Q2

REPORT INFORMATION
  Report Type: 
  Country: None (occurrence: None)
  Receive Date: 20090611
  Receipt Date: 20090528
  Transmission Date: 20091009
  Serious: No
  Sender: FDA-Public Use
  Company Number: PR-ABBOTT-09P-131-0576458-00

PATIENT
  Sex: Male
  Weight: 152.09 kg

DRUGS (4)
  1. HUMIRA [Suspect]
     Indication: PSORIASIS
     Route: 058
     Dates: start: 20090401, end: 20090522
  2. HUMIRA [Suspect]
     Dates: start: 20071201
  3. METHOTREXATE [Concomitant]
     Indication: PSORIASIS
     Route: 050
  4. IBUPROFEN [Concomitant]
     Indication: PAIN
     Route: 048

REACTIONS (3)
  - PRURITUS [None]
  - PSORIASIS [None]
  - RASH [None]
